FAERS Safety Report 4423218-0 (Version None)
Quarter: 2004Q3

REPORT INFORMATION
  Report Type: 
  Country: None (occurrence: None)
  Receive Date: 20040809
  Receipt Date: 20040726
  Transmission Date: 20050211
  Serious: Yes (Hospitalization, Other)
  Sender: FDA-Public Use
  Company Number: 2004050836

PATIENT
  Age: 58 Year
  Sex: Male
  Weight: 78 kg

DRUGS (3)
  1. ATORVASTATIN CALCIUM [Suspect]
     Indication: MIXED HYPERLIPIDAEMIA
     Dosage: ORAL
     Route: 048
     Dates: start: 20020101, end: 20040420
  2. ACETYLSALICYLIC ACID SRT [Suspect]
     Indication: CORONARY ARTERY ATHEROSCLEROSIS
     Dosage: 100 MG (100 MG, 1 IN 1 D), ORAL
     Route: 048
     Dates: start: 20020101
  3. ATENOLOL [Suspect]
     Indication: ATHEROSCLEROSIS
     Dosage: 50 MG (50 MG, 1 IN 1 D), ORAL
     Route: 048
     Dates: start: 20020101

REACTIONS (9)
  - ALANINE AMINOTRANSFERASE INCREASED [None]
  - ANAEMIA HAEMOLYTIC AUTOIMMUNE [None]
  - ANTINUCLEAR ANTIBODY POSITIVE [None]
  - ASPARTATE AMINOTRANSFERASE INCREASED [None]
  - BLOOD LACTATE DEHYDROGENASE INCREASED [None]
  - COOMBS TEST POSITIVE [None]
  - GAMMA-GLUTAMYLTRANSFERASE INCREASED [None]
  - PLATELET COUNT DECREASED [None]
  - WHITE BLOOD CELL COUNT INCREASED [None]
